FAERS Safety Report 5122303-8 (Version None)
Quarter: 2006Q4

REPORT INFORMATION
  Report Type: 
  Country: None (occurrence: None)
  Receive Date: 20061003
  Receipt Date: 20060821
  Transmission Date: 20070319
  Serious: Yes (Other)
  Sender: FDA-Public Use
  Company Number: 3055

PATIENT
  Age: 22 Year
  Sex: Female

DRUGS (2)
  1. AMNESTEEM [Suspect]
     Dosage: SEE IMAGE
     Route: 048
     Dates: start: 20060413, end: 20060516
  2. AMNESTEEM [Suspect]
     Dosage: SEE IMAGE
     Route: 048
     Dates: start: 20060516

REACTIONS (3)
  - ABORTION SPONTANEOUS [None]
  - DRUG EXPOSURE DURING PREGNANCY [None]
  - PREGNANCY [None]
